FAERS Safety Report 15579636 (Version 1)
Quarter: 2018Q4

REPORT INFORMATION
  Report Type: Spontaneous
  Country: SE (occurrence: SE)
  Receive Date: 20181102
  Receipt Date: 20181102
  Transmission Date: 20190205
  Serious: Yes (Hospitalization)
  Sender: FDA-Public Use
  Company Number: SE-BAYER-RCH-8414

PATIENT
  Age: 53 Year
  Sex: Female

DRUGS (5)
  1. FENANTOIN [Concomitant]
     Active Substance: PHENYTOIN
  2. PHENOBARBITAL [PHENOBARBITAL] [Concomitant]
  3. ACETYLSALICYLIC ACID [Suspect]
     Active Substance: ASPIRIN
     Indication: BACK PAIN
     Dosage: 1000 MG (DAILY DOSE), , ORAL
     Route: 048
  4. NAPROSYN [Suspect]
     Active Substance: NAPROXEN
     Indication: BACK PAIN
     Dosage: 750 MG (DAILY DOSE), , ORAL
     Route: 048
  5. PRIMIDONE. [Concomitant]
     Active Substance: PRIMIDONE

REACTIONS (2)
  - Large intestinal ulcer [None]
  - Melaena [None]
